FAERS Safety Report 7330684-X (Version None)
Quarter: 2011Q1

REPORT INFORMATION
  Report Type: 
  Country: None (occurrence: None)
  Receive Date: 20110304
  Receipt Date: 20110214
  Transmission Date: 20110831
  Serious: Yes (Other)
  Sender: FDA-Public Use
  Company Number: US-BAYER-201035468NA

PATIENT
  Sex: Female
  Weight: 88.45 kg

DRUGS (4)
  1. YASMIN [Suspect]
     Indication: ORAL CONTRACEPTION
     Route: 048
     Dates: start: 20060401
  2. METHOTREXATE [Concomitant]
     Indication: PSORIATIC ARTHROPATHY
  3. YAZ [Suspect]
     Indication: ORAL CONTRACEPTION
     Route: 048
     Dates: start: 20060401
  4. OCELLA [Suspect]
     Indication: PRODUCT USED FOR UNKNOWN INDICATION
     Dosage: UNK
     Route: 048

REACTIONS (9)
  - MUSCULOSKELETAL CHEST PAIN [None]
  - BILIARY COLIC [None]
  - DIARRHOEA [None]
  - CHOLECYSTITIS [None]
  - PAIN [None]
  - ABDOMINAL PAIN UPPER [None]
  - BENIGN LYMPH NODE NEOPLASM [None]
  - CHOLELITHIASIS [None]
  - NAUSEA [None]
